FAERS Safety Report 7207521-7 (Version None)
Quarter: 2011Q1

REPORT INFORMATION
  Report Type: 
  Country: None (occurrence: None)
  Receive Date: 20110103
  Receipt Date: 20101227
  Transmission Date: 20110831
  Serious: Yes (Other)
  Sender: FDA-Public Use
  Company Number: CHPA2010US19552

PATIENT
  Age: 45 Year
  Sex: Female
  Weight: 90.703 kg

DRUGS (1)
  1. PRIVATE LABEL [Suspect]
     Indication: SMOKING CESSATION THERAPY
     Dosage: 21 MG, QD
     Route: 062
     Dates: start: 20101226, end: 20101226

REACTIONS (1)
  - BLOOD GLUCOSE DECREASED [None]
